FAERS Safety Report 9657128 (Version 2)
Quarter: 2013Q4

REPORT INFORMATION
  Report Type: Spontaneous
  Country: US (occurrence: US)
  Receive Date: 20131030
  Receipt Date: 20131218
  Transmission Date: 20140711
  Serious: No
  Sender: FDA-Public Use
  Company Number: US-TEVA-441264USA

PATIENT
  Sex: Male

DRUGS (7)
  1. NUVIGIL [Suspect]
     Indication: DISTRACTIBILITY
  2. VYVANASE [Concomitant]
     Dosage: 50 MILLIGRAM DAILY; Q AM
  3. DEXTROAMPHETAMINE [Concomitant]
     Dosage: 10 MILLIGRAM DAILY; Q AM
  4. BUPROPION XL [Concomitant]
     Dosage: 150 MILLIGRAM DAILY;
  5. RIZATRIPTAN [Concomitant]
  6. ALPRAZOLAM [Concomitant]
     Dosage: A D
  7. LORAZEPAM [Concomitant]
     Dosage: 1 -2 Q HS

REACTIONS (3)
  - Insomnia [Recovered/Resolved]
  - Off label use [Unknown]
  - Drug effect prolonged [Unknown]
